FAERS Safety Report 20965789 (Version 4)
Quarter: 2022Q3

REPORT INFORMATION
  Report Type: Spontaneous
  Country: US (occurrence: US)
  Receive Date: 20220616
  Receipt Date: 20220714
  Transmission Date: 20221027
  Serious: No
  Sender: FDA-Public Use
  Company Number: US-UNITED THERAPEUTICS-UNT-2022-012353

PATIENT
  Sex: Male

DRUGS (5)
  1. REMODULIN [Suspect]
     Active Substance: TREPROSTINIL
     Indication: Pulmonary arterial hypertension
     Dosage: UNK, CONTINUING
     Route: 058
     Dates: start: 20220525
  2. REMODULIN [Suspect]
     Active Substance: TREPROSTINIL
     Dosage: 0.0115 ?G/KG, CONTINUING
     Route: 058
     Dates: start: 2022
  3. REMODULIN [Suspect]
     Active Substance: TREPROSTINIL
     Dosage: 0.0129 ?G/KG, CONTINUING
     Route: 058
     Dates: start: 20220605, end: 202206
  4. REMODULIN [Suspect]
     Active Substance: TREPROSTINIL
     Dosage: 0.01425 ?G/KG, CONTINUING
     Route: 058
     Dates: start: 202206, end: 202206
  5. REMODULIN [Suspect]
     Active Substance: TREPROSTINIL
     Dosage: 0.01965 ?G/KG, CONTINUING
     Route: 058
     Dates: start: 202206

REACTIONS (9)
  - Infusion site pain [Unknown]
  - Diarrhoea [Unknown]
  - Headache [Unknown]
  - Neck pain [Unknown]
  - Pain in jaw [Unknown]
  - Restlessness [Unknown]
  - Infusion site irritation [Unknown]
  - Infusion site discomfort [Not Recovered/Not Resolved]
  - Infusion site swelling [Unknown]

NARRATIVE: CASE EVENT DATE: 20220101
